FAERS Safety Report 23960194 (Version 1)
Quarter: 2024Q2

REPORT INFORMATION
  Report Type: Spontaneous
  Country: CA (occurrence: None)
  Receive Date: 20240607
  Receipt Date: 20240607
  Transmission Date: 20240715
  Serious: Yes (Other)
  Sender: FDA-Public Use
  Company Number: None

PATIENT
  Age: 61 Year
  Sex: Male

DRUGS (1)
  1. BILASTINE [Suspect]
     Active Substance: BILASTINE
     Dates: start: 20240606, end: 20240607

REACTIONS (2)
  - Heart rate decreased [None]
  - Feeling abnormal [None]

NARRATIVE: CASE EVENT DATE: 20240607
